FAERS Safety Report 6134339-9 (Version None)
Quarter: 2009Q1

REPORT INFORMATION
  Report Type: 
  Country: None (occurrence: None)
  Receive Date: 20090327
  Receipt Date: 20090317
  Transmission Date: 20090719
  Serious: Yes (Other)
  Sender: FDA-Public Use
  Company Number: FR-RANBAXY-2009RR-22436

PATIENT
  Sex: Male

DRUGS (5)
  1. GABAPENTIN [Suspect]
     Indication: EPILEPSY
     Dosage: 3 DF, QD
     Route: 048
  2. AMLODIPINE [Concomitant]
     Indication: HYPERTENSION
     Dosage: 10 MG, UNK
     Route: 048
  3. SOTALOL HYDROCHLORIDE [Concomitant]
     Indication: HYPERTENSION
     Dosage: 160 MG, UNK
     Route: 048
  4. TETRAZEPAM [Concomitant]
     Route: 048
  5. TRILEPTAL [Concomitant]
     Indication: EPILEPSY
     Dosage: UNK
     Dates: start: 20080101, end: 20080301

REACTIONS (1)
  - EPILEPSY [None]
